FAERS Safety Report 7699643-1 (Version None)
Quarter: 2011Q3

REPORT INFORMATION
  Report Type: 
  Country: None (occurrence: None)
  Receive Date: 20110822
  Receipt Date: 20110809
  Transmission Date: 20111222
  Serious: No
  Sender: FDA-Public Use
  Company Number: US-BIOGENIDEC-2011BI024317

PATIENT
  Sex: Female

DRUGS (1)
  1. TYSABRI [Suspect]
     Indication: MULTIPLE SCLEROSIS
     Route: 042
     Dates: start: 20110118

REACTIONS (9)
  - CONTUSION [None]
  - SUPERFICIAL VEIN PROMINENCE [None]
  - ORAL HERPES [None]
  - ARTHROPATHY [None]
  - ARTHRALGIA [None]
  - PARAESTHESIA [None]
  - PAIN IN EXTREMITY [None]
  - ERYTHEMA [None]
  - BACK PAIN [None]
